FAERS Safety Report 6597679-5 (Version None)
Quarter: 2010Q1

REPORT INFORMATION
  Report Type: 
  Country: None (occurrence: None)
  Receive Date: 20100223
  Receipt Date: 20100215
  Transmission Date: 20100710
  Serious: Yes (Other)
  Sender: FDA-Public Use
  Company Number: US-AMGEN-QUU389331

PATIENT
  Sex: Female
  Weight: 93 kg

DRUGS (15)
  1. NPLATE [Suspect]
     Indication: IDIOPATHIC THROMBOCYTOPENIC PURPURA
     Route: 058
     Dates: start: 20090121, end: 20090619
  2. DARBEPOETIN ALFA [Suspect]
     Indication: ANAEMIA OF MALIGNANT DISEASE
     Route: 058
     Dates: start: 20090126
  3. IMMU-G [Concomitant]
  4. RITUXIMAB [Concomitant]
  5. CAMPATH [Concomitant]
     Route: 058
     Dates: start: 20090105
  6. FAMVIR [Concomitant]
     Dates: start: 20081020
  7. COUMADIN [Concomitant]
  8. VITAMIN B-12 [Concomitant]
  9. ARIXTRA [Concomitant]
  10. ACYCLOVIR [Concomitant]
  11. BENDAMUSTINE [Concomitant]
     Dates: start: 20081001
  12. ELTROMBOPAG [Concomitant]
     Route: 048
  13. VALACYCLOVIR HYDROCHLORIDE [Concomitant]
     Route: 048
     Dates: start: 20090119
  14. ALLOPURINOL [Concomitant]
     Route: 048
     Dates: start: 20090126
  15. POLYGAM S/D [Concomitant]

REACTIONS (22)
  - ALLERGIC PHARYNGITIS [None]
  - ASTHENIA [None]
  - BACK PAIN [None]
  - BLOOD PRESSURE INCREASED [None]
  - CHILLS [None]
  - CHRONIC LYMPHOCYTIC LEUKAEMIA RECURRENT [None]
  - COUGH [None]
  - DYSPHONIA [None]
  - EPISTAXIS [None]
  - ERYTHEMA [None]
  - ESCHERICHIA URINARY TRACT INFECTION [None]
  - FATIGUE [None]
  - HYPERSENSITIVITY [None]
  - LYMPHADENOPATHY [None]
  - NEUTROPHIL PERCENTAGE DECREASED [None]
  - OEDEMA PERIPHERAL [None]
  - PAIN OF SKIN [None]
  - PLATELET COUNT DECREASED [None]
  - PYREXIA [None]
  - SPUTUM DISCOLOURED [None]
  - URTICARIA [None]
  - WHITE BLOOD CELL COUNT INCREASED [None]
